FAERS Safety Report 20730071 (Version 1)
Quarter: 2022Q2

REPORT INFORMATION
  Report Type: Spontaneous
  Country: US (occurrence: US)
  Receive Date: 20220420
  Receipt Date: 20220420
  Transmission Date: 20220721
  Serious: No
  Sender: FDA-Public Use
  Company Number: US-PFIZER INC-202200484054

PATIENT
  Age: 45 Year
  Sex: Female
  Weight: 106.59 kg

DRUGS (1)
  1. DOXEPIN HCL [Suspect]
     Active Substance: DOXEPIN HYDROCHLORIDE
     Dosage: 25 MG
     Dates: start: 20220314

REACTIONS (1)
  - Drug ineffective [Unknown]
